FAERS Safety Report 12559513 (Version 1)
Quarter: 2016Q3

REPORT INFORMATION
  Report Type: Spontaneous
  Country: US (occurrence: None)
  Receive Date: 20160714
  Receipt Date: 20160714
  Transmission Date: 20161109
  Serious: Yes (Disabling, Other)
  Sender: FDA-Public Use
  Company Number: None

PATIENT
  Age: 54 Year
  Sex: Female
  Weight: 63.5 kg

DRUGS (2)
  1. AO PROVANTAGE (MENTHOL INGREDIENT) [Suspect]
     Active Substance: HERBALS\MENTHOL
     Indication: GINGIVAL DISORDER
  2. VITAMIN D [Concomitant]
     Active Substance: CHOLECALCIFEROL

REACTIONS (3)
  - Burning sensation [None]
  - Drug hypersensitivity [None]
  - Adverse drug reaction [None]
